FAERS Safety Report 4337883-X (Version None)
Quarter: 2004Q1

REPORT INFORMATION
  Report Type: 
  Country: None (occurrence: None)
  Receive Date: 20040329
  Receipt Date: 20040114
  Transmission Date: 20041129
  Serious: No
  Sender: FDA-Public Use
  Company Number: US_031199028

PATIENT
  Age: 11 Year
  Sex: Male
  Weight: 33 kg

DRUGS (2)
  1. STRATTERA [Suspect]
     Indication: ATTENTION DEFICIT/HYPERACTIVITY DISORDER
     Dosage: 60 MG/DAY
     Dates: start: 20030708, end: 20031110
  2. ACETAMINOPHEN [Concomitant]

REACTIONS (3)
  - ACTIVATED PARTIAL THROMBOPLASTIN TIME PROLONGED [None]
  - HYPOCOAGULABLE STATE [None]
  - PRESCRIBED OVERDOSE [None]
